FAERS Safety Report 24417459 (Version 1)
Quarter: 2024Q4

REPORT INFORMATION
  Report Type: Spontaneous
  Country: US (occurrence: None)
  Receive Date: 20241008
  Receipt Date: 20241008
  Transmission Date: 20250114
  Serious: Yes (Disabling)
  Sender: Public
  Company Number: None

PATIENT
  Age: 70 Year
  Sex: Female
  Weight: 101.25 kg

DRUGS (6)
  1. INULIN [Suspect]
     Active Substance: INULIN
     Indication: Gastrointestinal disorder
     Dosage: OTHER QUANTITY : 1 TABLESPOON(S);?FREQUENCY : TWICE A DAY;?
     Route: 048
  2. HERBALS\MITRAGYNINE [Suspect]
     Active Substance: HERBALS\MITRAGYNINE
  3. XANAX [Concomitant]
  4. OXYCODONE [Concomitant]
  5. Aderal [Concomitant]
  6. AZO [Concomitant]
     Active Substance: PHENAZOPYRIDINE HYDROCHLORIDE

REACTIONS (6)
  - Fatigue [None]
  - Nausea [None]
  - Depression [None]
  - Nightmare [None]
  - Agitation [None]
  - Laboratory test abnormal [None]

NARRATIVE: CASE EVENT DATE: 20240624
